FAERS Safety Report 11697919 (Version 2)
Quarter: 2015Q4

REPORT INFORMATION
  Report Type: Spontaneous
  Country: US (occurrence: US)
  Receive Date: 20151104
  Receipt Date: 20151124
  Transmission Date: 20160304
  Serious: Yes (Other)
  Sender: FDA-Public Use
  Company Number: US-SHIRE-US201513406

PATIENT
  Age: 57 Year
  Sex: Female
  Weight: 49.89 kg

DRUGS (12)
  1. KLONOPIN [Concomitant]
     Active Substance: CLONAZEPAM
     Indication: SLEEP DISORDER
     Dosage: 2 MG, 1X/DAY:QD (EVERY NIGHT)
     Route: 048
  2. VYVANSE [Suspect]
     Active Substance: LISDEXAMFETAMINE DIMESYLATE
     Indication: ATTENTION DEFICIT/HYPERACTIVITY DISORDER
     Dosage: 50 MG, 1X/DAY:QD
     Route: 048
     Dates: start: 2015
  3. MORPHINE [Concomitant]
     Active Substance: MORPHINE
     Dosage: 15 MG, 1X/DAY:QD (EVERY AFTERNOON AND BEDTIME)
     Route: 048
     Dates: start: 2000
  4. VYVANSE [Suspect]
     Active Substance: LISDEXAMFETAMINE DIMESYLATE
     Dosage: UNK, UNKNOWN
     Route: 048
     Dates: end: 2015
  5. VICODIN [Concomitant]
     Active Substance: ACETAMINOPHEN\HYDROCODONE BITARTRATE
     Indication: PAIN
     Dosage: 10 MG, 4X/DAY:QID
     Route: 048
     Dates: start: 1999
  6. CALCIUM WITH VITAMIN D3            /01483701/ [Concomitant]
     Indication: SUPPLEMENTATION THERAPY
     Dosage: 600 MG, 1X/DAY:QD
     Route: 048
  7. ZYRTEC [Concomitant]
     Active Substance: CETIRIZINE HYDROCHLORIDE
     Indication: HYPERSENSITIVITY
     Dosage: UNK, 1X/DAY:QD (EVERY BEDTIME)
     Route: 048
  8. COLACE [Concomitant]
     Active Substance: DOCUSATE SODIUM
     Indication: PRODUCT USED FOR UNKNOWN INDICATION
     Dosage: 200 MG, 1X/DAY:QD (EVERY BEDTIME)
     Route: 048
     Dates: start: 1999
  9. MORPHINE [Concomitant]
     Active Substance: MORPHINE
     Indication: PAIN
     Dosage: 30 MG, 1X/DAY:QD (EVERY AM)
     Route: 048
     Dates: start: 2000
  10. MULTIVITAMIN                       /07504101/ [Concomitant]
     Active Substance: VITAMINS
     Indication: SUPPLEMENTATION THERAPY
     Dosage: UNK, 1X/DAY:QD
     Route: 048
  11. PROBIOTICS NOS [Concomitant]
     Active Substance: PROBIOTICS NOS
     Indication: WEIGHT ABNORMAL
     Dosage: 10 BILLION UNITS, 1X/DAY:QD
     Route: 048
     Dates: start: 2015
  12. SOMA [Concomitant]
     Active Substance: CARISOPRODOL
     Indication: MUSCLE SPASMS
     Dosage: 350 MG, 3X/DAY:TID
     Route: 048
     Dates: start: 1999

REACTIONS (7)
  - Abnormal loss of weight [Not Recovered/Not Resolved]
  - Sleep disorder [Not Recovered/Not Resolved]
  - Drug ineffective [Not Recovered/Not Resolved]
  - Blood glucose increased [Not Recovered/Not Resolved]
  - Condition aggravated [Not Recovered/Not Resolved]
  - Wrist fracture [Recovered/Resolved]
  - Product quality issue [Unknown]

NARRATIVE: CASE EVENT DATE: 201408
